FAERS Safety Report 21662856 (Version 1)
Quarter: 2022Q4

REPORT INFORMATION
  Report Type: Spontaneous
  Country: JP (occurrence: JP)
  Receive Date: 20221130
  Receipt Date: 20221130
  Transmission Date: 20230113
  Serious: Yes (Other)
  Sender: FDA-Public Use
  Company Number: JP-PFIZER INC-PV202200108354

PATIENT
  Age: 70 Year
  Sex: Male

DRUGS (3)
  1. VORICONAZOLE [Interacting]
     Active Substance: VORICONAZOLE
     Indication: Pulmonary embolism
     Dosage: UNK
  2. VORICONAZOLE [Interacting]
     Active Substance: VORICONAZOLE
     Indication: Candida infection
  3. PHENYTOIN [Interacting]
     Active Substance: PHENYTOIN

REACTIONS (3)
  - Infective spondylitis [Recovered/Resolved]
  - Drug interaction [Unknown]
  - Drug level decreased [Unknown]
